FAERS Safety Report 7440791-9 (Version None)
Quarter: 2011Q2

REPORT INFORMATION
  Report Type: 
  Country: None (occurrence: None)
  Receive Date: 20110427
  Receipt Date: 20110420
  Transmission Date: 20111010
  Serious: Yes (Hospitalization)
  Sender: FDA-Public Use
  Company Number: JP-B.I. PHARMACEUTICALS,INC./RIDGEFIELD-2011-BP-10237NB

PATIENT
  Sex: Female
  Weight: 46 kg

DRUGS (11)
  1. LANIRAPID [Concomitant]
     Indication: ATRIAL FIBRILLATION
  2. FERROUS CITRATE [Concomitant]
     Indication: IRON DEFICIENCY ANAEMIA
     Dosage: 50 MG
     Route: 048
  3. PRAZAXA [Suspect]
     Indication: ATRIAL FIBRILLATION
     Dosage: 220 MG
     Route: 048
     Dates: start: 20110402, end: 20110404
  4. LANIRAPID [Concomitant]
     Indication: CARDIAC FAILURE
     Dosage: 0.05 MG
     Route: 048
  5. ALLOPURINOL [Concomitant]
     Indication: HYPERURICAEMIA
     Dosage: 100 MG
     Route: 048
  6. LUPRAC [Concomitant]
     Indication: CARDIAC FAILURE
     Dosage: 16 MG
     Route: 048
  7. WARFARIN [Concomitant]
     Dosage: 1.5 MG
     Route: 048
     Dates: start: 20040330, end: 20110401
  8. NORVASC [Concomitant]
     Indication: HYPERTENSION
     Dosage: 5 MG
     Route: 048
  9. PROTECADIN [Concomitant]
     Indication: GASTRIC PH DECREASED
     Dosage: 10 MG
     Route: 048
     Dates: start: 20100406
  10. LASIX [Concomitant]
     Indication: CARDIAC FAILURE
     Dosage: 80 MG
     Route: 048
  11. ALESION [Concomitant]
     Indication: PRURITUS
     Dosage: 20 MG
     Route: 048
     Dates: start: 20100806

REACTIONS (2)
  - GASTROINTESTINAL HAEMORRHAGE [None]
  - ABDOMINAL DISCOMFORT [None]
